FAERS Safety Report 8033177-X (Version None)
Quarter: 2012Q1

REPORT INFORMATION
  Report Type: 
  Country: None (occurrence: None)
  Receive Date: 20120110
  Receipt Date: 20120106
  Transmission Date: 20120608
  Serious: Yes (Death, Life-Threatening, Hospitalization)
  Sender: FDA-Public Use
  Company Number: MY-GENZYME-CLOF-1001915

PATIENT
  Sex: Female
  Weight: 8 kg

DRUGS (6)
  1. MONTELUKAST [Concomitant]
     Indication: PRODUCT USED FOR UNKNOWN INDICATION
     Dosage: 4 MG, AT NIGHT (NOCTE)
     Route: 065
     Dates: start: 20110928
  2. CYCLOPHOSPHAMIDE [Concomitant]
     Indication: ACUTE LYMPHOCYTIC LEUKAEMIA
     Dosage: 400 MG/M2, UNK
     Route: 065
     Dates: start: 20110928, end: 20111002
  3. ETOPOSIDE [Concomitant]
     Indication: ACUTE LYMPHOCYTIC LEUKAEMIA
     Dosage: 150 MG/M2, UNK
     Route: 065
     Dates: start: 20110928, end: 20111002
  4. GRANISETRON [Concomitant]
     Indication: ANTIEMETIC SUPPORTIVE CARE
     Dosage: 0.5 MG/KG, UNK
     Route: 065
     Dates: start: 20110928, end: 20111002
  5. FLUTICASONE PROPIONATE [Concomitant]
     Indication: BRONCHIAL HYPERREACTIVITY
     Dosage: 125 MCG, BID
     Route: 055
     Dates: start: 20110928
  6. EVOLTRA [Suspect]
     Indication: ACUTE LYMPHOCYTIC LEUKAEMIA
     Dosage: 40 MG/M2, QD X5 DAYS
     Route: 065
     Dates: start: 20110928, end: 20111002

REACTIONS (2)
  - DEATH [None]
  - NEUTROPENIA [None]
